FAERS Safety Report 10710525 (Version 1)
Quarter: 2015Q1

REPORT INFORMATION
  Report Type: Spontaneous
  Country: US (occurrence: US)
  Receive Date: 20150114
  Receipt Date: 20150114
  Transmission Date: 20150721
  Serious: Yes (Other)
  Sender: FDA-Public Use
  Company Number: US-SA-2015SA002670

PATIENT
  Sex: Female
  Weight: 3.4 kg

DRUGS (15)
  1. AMIODARONE [Suspect]
     Active Substance: AMIODARONE
     Indication: TACHYCARDIA FOETAL
     Dosage: THROUGH THE UMBILICAL CORD; PERFORMED 4 TIMES
  2. AMIODARONE [Suspect]
     Active Substance: AMIODARONE
     Indication: TACHYCARDIA FOETAL
     Dosage: INFUSION
     Route: 065
  3. QUETIAPINE FUMARATE. [Suspect]
     Active Substance: QUETIAPINE FUMARATE
     Indication: MATERNAL EXPOSURE TIMING UNSPECIFIED
     Route: 064
  4. AMIODARONE [Suspect]
     Active Substance: AMIODARONE
     Indication: TACHYCARDIA FOETAL
     Dosage: FOR FOUR DOSES
     Route: 064
  5. AMIODARONE [Suspect]
     Active Substance: AMIODARONE
     Indication: TACHYCARDIA FOETAL
     Dosage: FOR FOUR DOSES
     Route: 064
  6. FLECAINIDE ACETATE. [Suspect]
     Active Substance: FLECAINIDE ACETATE
     Indication: SUPRAVENTRICULAR TACHYCARDIA
     Route: 048
  7. DIGOXIN. [Suspect]
     Active Substance: DIGOXIN
     Indication: MATERNAL EXPOSURE TIMING UNSPECIFIED
     Route: 064
  8. DIGOXIN. [Suspect]
     Active Substance: DIGOXIN
     Indication: MATERNAL EXPOSURE TIMING UNSPECIFIED
     Route: 064
  9. AMIODARONE [Suspect]
     Active Substance: AMIODARONE
     Indication: TACHYCARDIA FOETAL
     Route: 064
  10. DIGOXIN. [Suspect]
     Active Substance: DIGOXIN
     Indication: MATERNAL EXPOSURE TIMING UNSPECIFIED
     Dosage: 4 DOSES
     Route: 064
  11. DIGOXIN. [Suspect]
     Active Substance: DIGOXIN
     Indication: MATERNAL EXPOSURE TIMING UNSPECIFIED
     Dosage: 4 DOSES
     Route: 064
  12. GLIBENCLAMIDE [Suspect]
     Active Substance: GLYBURIDE
     Indication: MATERNAL EXPOSURE TIMING UNSPECIFIED
     Route: 064
  13. AMIODARONE [Suspect]
     Active Substance: AMIODARONE
     Indication: TACHYCARDIA FOETAL
     Route: 048
  14. PROPRANOLOL [Concomitant]
     Active Substance: PROPRANOLOL\PROPRANOLOL HYDROCHLORIDE
     Indication: SUPRAVENTRICULAR TACHYCARDIA
     Route: 048
  15. FLECAINIDE ACETATE. [Suspect]
     Active Substance: FLECAINIDE ACETATE
     Indication: SUPRAVENTRICULAR TACHYCARDIA
     Route: 048

REACTIONS (5)
  - Thyroxine free decreased [Recovered/Resolved]
  - Blood thyroid stimulating hormone increased [Recovered/Resolved]
  - Hypothyroidism [Recovered/Resolved]
  - Product use issue [Unknown]
  - Foetal exposure during pregnancy [Unknown]
